FAERS Safety Report 10240026 (Version 1)
Quarter: 2014Q2

REPORT INFORMATION
  Report Type: Spontaneous
  Country: IN (occurrence: IN)
  Receive Date: 20140617
  Receipt Date: 20140617
  Transmission Date: 20141212
  Serious: Yes (Life-Threatening, Hospitalization, Disabling, Other)
  Sender: FDA-Public Use
  Company Number: IN-009507513-1406IND004647

PATIENT
  Age: 57 Year
  Sex: Male
  Weight: 85 kg

DRUGS (3)
  1. ZIENAM [Suspect]
     Indication: ANTIBIOTIC PROPHYLAXIS
     Dosage: 1 G, STAT
     Route: 042
     Dates: start: 20140607, end: 20140607
  2. PLATELET CONCENTRATE [Concomitant]
     Indication: THROMBOCYTOPENIA
     Dosage: UNK, ONCE
     Route: 042
     Dates: start: 20140606, end: 20140607
  3. BLOOD CELLS, RED [Concomitant]
     Indication: ANAEMIA
     Dosage: STAT
     Route: 042
     Dates: start: 20140606, end: 20140606

REACTIONS (6)
  - Shock [Recovered/Resolved]
  - Dyspnoea [Recovered/Resolved]
  - Rash erythematous [Recovered/Resolved]
  - Bradycardia [Recovered/Resolved]
  - Anaphylactic reaction [Recovered/Resolved]
  - Hypotension [Recovered/Resolved]
